FAERS Safety Report 8138713-0 (Version None)
Quarter: 2012Q1

REPORT INFORMATION
  Report Type: 
  Country: None (occurrence: None)
  Receive Date: 20120215
  Receipt Date: 20120209
  Transmission Date: 20120608
  Serious: Yes (Hospitalization)
  Sender: FDA-Public Use
  Company Number: US-GLAXOSMITHKLINE-A0913501A

PATIENT
  Age: 48 Year
  Sex: Female

DRUGS (7)
  1. ZOCOR [Concomitant]
  2. DIOVAN [Concomitant]
  3. GLUCOPHAGE [Concomitant]
  4. COMBIVENT [Concomitant]
  5. ZYBAN [Concomitant]
  6. AVANDIA [Suspect]
     Indication: DIABETES MELLITUS
     Dosage: 4MG TWICE PER DAY
     Route: 048
     Dates: start: 19990101, end: 20001201
  7. PAXIL [Concomitant]

REACTIONS (5)
  - CEREBROVASCULAR ACCIDENT [None]
  - MYOCARDIAL INFARCTION [None]
  - CARDIAC DISORDER [None]
  - TRANSIENT ISCHAEMIC ATTACK [None]
  - CARDIOVASCULAR DISORDER [None]
